APPROVED DRUG PRODUCT: METHAMPHETAMINE HYDROCHLORIDE
Active Ingredient: METHAMPHETAMINE HYDROCHLORIDE
Strength: 5MG
Dosage Form/Route: TABLET;ORAL
Application: A091189 | Product #001 | TE Code: AA
Applicant: DR REDDYS LABORATORIES SA
Approved: Apr 21, 2010 | RLD: No | RS: No | Type: RX